FAERS Safety Report 5823808-4 (Version None)
Quarter: 2008Q3

REPORT INFORMATION
  Report Type: 
  Country: None (occurrence: None)
  Receive Date: 20080725
  Receipt Date: 20080715
  Transmission Date: 20090109
  Serious: Yes (Other)
  Sender: FDA-Public Use
  Company Number: US-PFIZER INC-2008059454

PATIENT
  Sex: Female
  Weight: 63.63 kg

DRUGS (2)
  1. NEURONTIN [Suspect]
     Indication: GUILLAIN-BARRE SYNDROME
     Route: 048
  2. DIAZEPAM [Concomitant]
     Indication: RESTLESS LEGS SYNDROME

REACTIONS (7)
  - ABDOMINAL DISTENSION [None]
  - ALOPECIA [None]
  - FOOT FRACTURE [None]
  - FRACTURE [None]
  - FUNGAL INFECTION [None]
  - TOOTH FRACTURE [None]
  - WEIGHT INCREASED [None]
